FAERS Safety Report 8053172-4 (Version None)
Quarter: 2012Q1

REPORT INFORMATION
  Report Type: 
  Country: None (occurrence: None)
  Receive Date: 20120118
  Receipt Date: 20120116
  Transmission Date: 20120608
  Serious: Yes (Hospitalization)
  Sender: FDA-Public Use
  Company Number: JP-ROCHE-1031162

PATIENT
  Age: 57 Year
  Sex: Female
  Weight: 89 kg

DRUGS (4)
  1. AVASTIN [Suspect]
     Indication: RECTAL CANCER RECURRENT
     Route: 041
     Dates: start: 20111202, end: 20111202
  2. XELODA [Suspect]
     Indication: RECTAL CANCER RECURRENT
     Route: 048
     Dates: start: 20111202, end: 20111206
  3. AMLODIPINE [Concomitant]
     Dosage: DOSAGE IS UNCERTAIN.
     Route: 048
  4. CANDESARTAN CILEXETIL [Concomitant]
     Dosage: DOSAGE IS UNCERTAIN.
     Route: 048

REACTIONS (1)
  - SMALL INTESTINAL PERFORATION [None]
